FAERS Safety Report 5104836-3 (Version None)
Quarter: 2006Q3

REPORT INFORMATION
  Report Type: 
  Country: None (occurrence: None)
  Receive Date: 20060914
  Receipt Date: 20060804
  Transmission Date: 20061208
  Serious: Yes (Hospitalization)
  Sender: FDA-Public Use
  Company Number: US-ROCHE-458586

PATIENT
  Age: 72 Year
  Sex: Female

DRUGS (3)
  1. BONIVA [Suspect]
     Indication: OSTEOPOROSIS
     Route: 048
     Dates: start: 20060707, end: 20060707
  2. ALLOPURINOL [Concomitant]
     Indication: GOUT
  3. DARVOCET-N 100 [Concomitant]
     Indication: ARTHRITIS

REACTIONS (4)
  - ABASIA [None]
  - ASTHENIA [None]
  - FATIGUE [None]
  - PAIN [None]
